FAERS Safety Report 5195136-4 (Version None)
Quarter: 2006Q4

REPORT INFORMATION
  Report Type: 
  Country: None (occurrence: None)
  Receive Date: 20061229
  Receipt Date: 20060127
  Transmission Date: 20070319
  Serious: Yes (Death, Hospitalization, Other)
  Sender: FDA-Public Use
  Company Number: US-PFIZER INC-2006016268

PATIENT
  Sex: Male

DRUGS (3)
  1. CELEBREX [Suspect]
     Dates: start: 20000101, end: 20040407
  2. BEXTRA [Suspect]
  3. VIOXX [Suspect]
     Route: 048
     Dates: start: 20000101, end: 20040407

REACTIONS (1)
  - MYOCARDIAL INFARCTION [None]
